FAERS Safety Report 10562788 (Version 1)
Quarter: 2014Q4

REPORT INFORMATION
  Report Type: Spontaneous
  Country: US (occurrence: None)
  Receive Date: 20141103
  Receipt Date: 20141103
  Transmission Date: 20150529
  Serious: Yes (Life-Threatening, Disabling)
  Sender: FDA-Public Use
  Company Number: None

PATIENT
  Age: 66 Year
  Sex: Female
  Weight: 88.91 kg

DRUGS (2)
  1. SAVELLA [Suspect]
     Active Substance: MILNACIPRAN HYDROCHLORIDE
     Indication: PAIN
     Dosage: TAKEN BY MOUTH
     Dates: end: 20140826
  2. SAVELLA [Suspect]
     Active Substance: MILNACIPRAN HYDROCHLORIDE
     Indication: FIBROMYALGIA
     Dosage: TAKEN BY MOUTH
     Dates: end: 20140826

REACTIONS (8)
  - Night sweats [None]
  - Hostility [None]
  - Palpitations [None]
  - Crying [None]
  - Depression [None]
  - Psychiatric symptom [None]
  - Emotional disorder [None]
  - Insomnia [None]
